FAERS Safety Report 5289184-3 (Version None)
Quarter: 2007Q1

REPORT INFORMATION
  Report Type: 
  Country: None (occurrence: None)
  Receive Date: 20070119
  Receipt Date: 20060425
  Transmission Date: 20070707
  Serious: Yes (Hospitalization)
  Sender: FDA-Public Use
  Company Number: BDI-008176

PATIENT
  Age: 25 Year
  Sex: Female
  Weight: 72.73 kg

DRUGS (2)
  1. PROHANCE [Suspect]
     Indication: NUCLEAR MAGNETIC RESONANCE IMAGING BRAIN
     Dosage: 15 ML ONCE IV
     Route: 042
     Dates: start: 20060425, end: 20060425
  2. PROHANCE [Suspect]
     Indication: PITUITARY TUMOUR BENIGN
     Dosage: 15 ML ONCE IV
     Route: 042
     Dates: start: 20060425, end: 20060425

REACTIONS (1)
  - ANAPHYLACTOID REACTION [None]
